FAERS Safety Report 9721677 (Version 3)
Quarter: 2014Q1

REPORT INFORMATION
  Report Type: Spontaneous
  Country: US (occurrence: US)
  Receive Date: 20131201
  Receipt Date: 20140228
  Transmission Date: 20141002
  Serious: No
  Sender: FDA-Public Use
  Company Number: US-ABBVIE-13P-163-1087400-00

PATIENT
  Age: 52 Year
  Sex: Male
  Weight: 97.16 kg

DRUGS (4)
  1. ANDROGEL [Suspect]
     Indication: BLOOD TESTOSTERONE DECREASED
     Dosage: 2 PUMPS DAILY
     Dates: start: 201212, end: 201308
  2. ANDROGEL [Suspect]
     Indication: BLOOD TESTOSTERONE DECREASED
     Dosage: (1) 5G PACKET DAILY
     Dates: start: 201302, end: 201303
  3. ZINC [Concomitant]
     Indication: PRODUCT USED FOR UNKNOWN INDICATION
  4. ONE A DAY MENS [Concomitant]
     Indication: PRODUCT USED FOR UNKNOWN INDICATION

REACTIONS (4)
  - Skin irritation [Recovered/Resolved]
  - Blood testosterone abnormal [Not Recovered/Not Resolved]
  - Blood testosterone decreased [Not Recovered/Not Resolved]
  - Drug ineffective [Not Recovered/Not Resolved]
